FAERS Safety Report 15146229 (Version 2)
Quarter: 2018Q3

REPORT INFORMATION
  Report Type: Spontaneous
  Country: US (occurrence: US)
  Receive Date: 20180715
  Receipt Date: 20180716
  Transmission Date: 20181010
  Serious: No
  Sender: FDA-Public Use
  Company Number: US-JNJFOC-20180620979

PATIENT
  Age: 59 Year
  Sex: Female
  Weight: 45.36 kg

DRUGS (5)
  1. MENS ROGAINE EXTRA STRENGTH [Suspect]
     Active Substance: MINOXIDIL
     Route: 061
  2. MENS ROGAINE EXTRA STRENGTH [Suspect]
     Active Substance: MINOXIDIL
     Indication: ALOPECIA
     Route: 061
     Dates: start: 20180601
  3. MENS ROGAINE EXTRA STRENGTH [Suspect]
     Active Substance: MINOXIDIL
     Route: 061
  4. MENS ROGAINE EXTRA STRENGTH [Suspect]
     Active Substance: MINOXIDIL
     Indication: ALOPECIA
     Route: 061
     Dates: start: 20180608
  5. VIVISCAL [Concomitant]
     Indication: ALOPECIA
     Route: 050

REACTIONS (8)
  - Hair texture abnormal [Not Recovered/Not Resolved]
  - Product use in unapproved indication [Unknown]
  - Incorrect drug administration duration [Unknown]
  - Off label use [Unknown]
  - Overdose [Unknown]
  - Product quality issue [Unknown]
  - Product use issue [Unknown]
  - Contraindicated product administered [Unknown]

NARRATIVE: CASE EVENT DATE: 20180601
